FAERS Safety Report 21033488 (Version 1)
Quarter: 2022Q3

REPORT INFORMATION
  Report Type: Report from Study
  Country: US (occurrence: US)
  Receive Date: 20220701
  Receipt Date: 20220701
  Transmission Date: 20221026
  Serious: Yes (Death)
  Sender: FDA-Public Use
  Company Number: US-MYLANLABS-2022M1049789

PATIENT

DRUGS (2)
  1. AZACITIDINE [Suspect]
     Active Substance: AZACITIDINE
     Indication: Leukaemia
     Dosage: 37.5 MILLIGRAM/SQ. METER, CYCLE (SCHEDULED TO RECEIVE ON DAYS 1-5 OF A 28 DAY CYCLE FOR TWO CYCLES)
     Route: 065
  2. AZACITIDINE [Suspect]
     Active Substance: AZACITIDINE
     Indication: Drug therapy
     Dosage: 50 MILLIGRAM/SQ. METER
     Route: 065

REACTIONS (2)
  - Graft versus host disease in skin [Fatal]
  - Graft versus host disease in lung [Fatal]
